FAERS Safety Report 8378171-4 (Version None)
Quarter: 2012Q2

REPORT INFORMATION
  Report Type: 
  Country: None (occurrence: None)
  Receive Date: 20120522
  Receipt Date: 20120517
  Transmission Date: 20120825
  Serious: No
  Sender: FDA-Public Use
  Company Number: US-PFIZER INC-2012120966

PATIENT
  Age: 50 Year
  Sex: Female
  Weight: 65.76 kg

DRUGS (2)
  1. CELECOXIB [Suspect]
     Dosage: 200 MG, UNK
     Dates: start: 20120501
  2. CELECOXIB [Suspect]
     Indication: ARTHRALGIA
     Dosage: UNK

REACTIONS (1)
  - THROAT IRRITATION [None]
